FAERS Safety Report 14066668 (Version 2)
Quarter: 2017Q4

REPORT INFORMATION
  Report Type: Spontaneous
  Country: IT (occurrence: IT)
  Receive Date: 20171010
  Receipt Date: 20171018
  Transmission Date: 20180321
  Serious: Yes (Other)
  Sender: FDA-Public Use
  Company Number: IT-BRISTOL-MYERS SQUIBB COMPANY-BMS-2017-087256

PATIENT
  Age: 76 Year
  Sex: Female

DRUGS (2)
  1. TACHIPIRINA [Concomitant]
     Active Substance: ACETAMINOPHEN
     Indication: PRODUCT USED FOR UNKNOWN INDICATION
     Dosage: UNK
     Route: 065
     Dates: start: 20170921, end: 20170926
  2. COUMADIN [Suspect]
     Active Substance: WARFARIN SODIUM
     Indication: ATRIAL FIBRILLATION
     Dosage: 21.25 MG, QWK
     Route: 048
     Dates: start: 20140415

REACTIONS (2)
  - Drug abuse [Unknown]
  - International normalised ratio fluctuation [Unknown]

NARRATIVE: CASE EVENT DATE: 20170927
